FAERS Safety Report 4544927-9 (Version None)
Quarter: 2005Q1

REPORT INFORMATION
  Report Type: 
  Country: None (occurrence: None)
  Receive Date: 20050105
  Receipt Date: 20041013
  Transmission Date: 20050727
  Serious: No
  Sender: FDA-Public Use
  Company Number: US-GLAXOSMITHKLINE-A0529712A

PATIENT

DRUGS (1)
  1. ARIXTRA [Suspect]

REACTIONS (1)
  - ADVERSE EVENT [None]
